FAERS Safety Report 8559886-1 (Version None)
Quarter: 2012Q3

REPORT INFORMATION
  Report Type: 
  Country: None (occurrence: None)
  Receive Date: 20120802
  Receipt Date: 20120726
  Transmission Date: 20120928
  Serious: Yes (Hospitalization)
  Sender: FDA-Public Use
  Company Number: US-ABBOTT-12P-163-0961249-00

PATIENT
  Sex: Female

DRUGS (15)
  1. HUMIRA [Suspect]
     Indication: CROHN'S DISEASE
     Route: 058
     Dates: start: 20110615
  2. RELPAX [Concomitant]
     Indication: PRODUCT USED FOR UNKNOWN INDICATION
  3. FENTANYL CITRATE [Concomitant]
     Indication: PAIN
  4. OXYCODONE HCL [Concomitant]
     Indication: PAIN
  5. BENTYL [Concomitant]
     Indication: CROHN'S DISEASE
  6. TRAMADOL HCL [Concomitant]
     Indication: CROHN'S DISEASE
  7. DEPO-PROVERA [Concomitant]
     Indication: PRODUCT USED FOR UNKNOWN INDICATION
  8. VITAMIN TAB [Concomitant]
     Indication: VITAMIN SUPPLEMENTATION
  9. PROTONIX [Concomitant]
     Indication: CROHN'S DISEASE
  10. ZOFRAN [Concomitant]
     Indication: CROHN'S DISEASE
  11. VITAMIN B COMPLEX CAP [Concomitant]
     Indication: VITAMIN SUPPLEMENTATION
  12. SYNTHROID [Concomitant]
     Indication: HYPOTHYROIDISM
  13. TRALAC [Concomitant]
     Indication: PRODUCT USED FOR UNKNOWN INDICATION
  14. EFFEXOR [Concomitant]
     Indication: DEPRESSION
  15. IMODIUM [Concomitant]
     Indication: CROHN'S DISEASE

REACTIONS (5)
  - DEHYDRATION [None]
  - DECREASED APPETITE [None]
  - DIZZINESS [None]
  - FISTULA [None]
  - UNEVALUABLE EVENT [None]
